FAERS Safety Report 20356092 (Version 1)
Quarter: 2022Q1

REPORT INFORMATION
  Report Type: Spontaneous
  Country: US (occurrence: None)
  Receive Date: 20220119
  Receipt Date: 20220119
  Transmission Date: 20220423
  Serious: Yes (Disabling, Other)
  Sender: FDA-Public Use
  Company Number: None

PATIENT
  Age: 28 Year
  Sex: Male
  Weight: 76.5 kg

DRUGS (1)
  1. FINASTERIDE [Suspect]
     Active Substance: FINASTERIDE
     Indication: Alopecia
     Dosage: FREQUENCY : DAILY;?
     Route: 048
     Dates: start: 20210906, end: 20210917

REACTIONS (16)
  - Testicular pain [None]
  - Flank pain [None]
  - Sexual dysfunction [None]
  - Orgasm abnormal [None]
  - Urinary tract disorder [None]
  - Genital pain [None]
  - Penile pain [None]
  - Myalgia [None]
  - Male genital atrophy [None]
  - Skin atrophy [None]
  - Sleep disorder [None]
  - Insomnia [None]
  - Depression [None]
  - Anxiety [None]
  - Weight decreased [None]
  - Sexual dysfunction [None]

NARRATIVE: CASE EVENT DATE: 20210921
